FAERS Safety Report 19742180 (Version 1)
Quarter: 2021Q3

REPORT INFORMATION
  Report Type: Spontaneous
  Country: GB (occurrence: GB)
  Receive Date: 20210825
  Receipt Date: 20210825
  Transmission Date: 20211014
  Serious: Yes (Life-Threatening, Hospitalization, Other)
  Sender: FDA-Public Use
  Company Number: GB-AUROBINDO-AUR-APL-2021-035285

PATIENT
  Age: 50 Year
  Sex: Female
  Weight: 72 kg

DRUGS (7)
  1. NITROFURANTOIN. [Concomitant]
     Active Substance: NITROFURANTOIN
     Indication: PRODUCT USED FOR UNKNOWN INDICATION
     Dosage: UNK
     Route: 065
  2. TRIMETHOPRIM. [Concomitant]
     Active Substance: TRIMETHOPRIM
     Indication: BLADDER PAIN
     Dosage: UNK
     Route: 065
  3. OXYCONTIN [Concomitant]
     Active Substance: OXYCODONE HYDROCHLORIDE
     Indication: PAIN
     Dosage: 10 MILLIGRAM
     Route: 065
  4. CIPROFLOXACIN FILM?COATED TABLETS [Suspect]
     Active Substance: CIPROFLOXACIN
     Indication: BLADDER PAIN
     Dosage: 1 DOSAGE FORM, TWO TIMES A DAY
     Route: 048
     Dates: start: 20110101, end: 20110107
  5. IBUPROFEN TABLETS [Suspect]
     Active Substance: IBUPROFEN
     Indication: PAIN
     Dosage: 400 MILLIGRAM, 3 TIMES A DAY
     Route: 048
     Dates: start: 20101231
  6. AMOXICILLIN. [Concomitant]
     Active Substance: AMOXICILLIN
     Indication: PRODUCT USED FOR UNKNOWN INDICATION
     Dosage: UNK
     Route: 065
  7. AUGMENTIN [Concomitant]
     Active Substance: AMOXICILLIN\CLAVULANATE POTASSIUM
     Indication: BLADDER PAIN
     Dosage: UNK
     Route: 065

REACTIONS (55)
  - Vitreous floaters [Not Recovered/Not Resolved]
  - Palpitations [Not Recovered/Not Resolved]
  - Fall [Unknown]
  - Swelling [Unknown]
  - Migraine [Not Recovered/Not Resolved]
  - Photosensitivity reaction [Recovering/Resolving]
  - Disorientation [Not Recovered/Not Resolved]
  - Alopecia [Unknown]
  - Muscle twitching [Recovering/Resolving]
  - Asthenia [Unknown]
  - Vomiting [Unknown]
  - Hypoacusis [Not Recovered/Not Resolved]
  - Reflexes abnormal [Unknown]
  - Back pain [Unknown]
  - Dry eye [Unknown]
  - Nausea [Unknown]
  - Gait disturbance [Unknown]
  - Neuropathy peripheral [Recovering/Resolving]
  - Skin burning sensation [Unknown]
  - Rash [Unknown]
  - Malaise [Unknown]
  - Hyperhidrosis [Unknown]
  - Weight decreased [Recovering/Resolving]
  - Skin atrophy [Unknown]
  - Pain [Not Recovered/Not Resolved]
  - Joint noise [Unknown]
  - Visual acuity reduced [Unknown]
  - Illness [Not Recovered/Not Resolved]
  - Aphasia [Unknown]
  - Insomnia [Not Recovered/Not Resolved]
  - Balance disorder [Recovering/Resolving]
  - Sensory disturbance [Unknown]
  - Drug interaction [Unknown]
  - Arthralgia [Unknown]
  - Psychomotor skills impaired [Recovering/Resolving]
  - Pruritus [Unknown]
  - Hyperacusis [Unknown]
  - Breast pain [Unknown]
  - Headache [Unknown]
  - Tinnitus [Not Recovered/Not Resolved]
  - Formication [Unknown]
  - Sleep disorder [Unknown]
  - Feeling abnormal [Unknown]
  - Photophobia [Not Recovered/Not Resolved]
  - Eye pain [Not Recovered/Not Resolved]
  - Fatigue [Unknown]
  - Cachexia [Unknown]
  - Cognitive disorder [Unknown]
  - Dyskinesia [Recovering/Resolving]
  - Musculoskeletal stiffness [Unknown]
  - Dyspnoea [Not Recovered/Not Resolved]
  - Contusion [Unknown]
  - Electric shock sensation [Unknown]
  - Vasodilatation [Unknown]
  - Pain of skin [Unknown]
